FAERS Safety Report 8259894-4 (Version None)
Quarter: 2012Q2

REPORT INFORMATION
  Report Type: 
  Country: None (occurrence: None)
  Receive Date: 20120404
  Receipt Date: 20120329
  Transmission Date: 20120825
  Serious: Yes (Other)
  Sender: FDA-Public Use
  Company Number: RU-GLAXOSMITHKLINE-B0792634A

PATIENT

DRUGS (1)
  1. ATRIANCE [Suspect]
     Indication: PRODUCT USED FOR UNKNOWN INDICATION
     Route: 065

REACTIONS (5)
  - MULTI-ORGAN FAILURE [None]
  - HEPATITIS TOXIC [None]
  - ENTEROCOLITIS HAEMORRHAGIC [None]
  - PNEUMONIA [None]
  - PANCYTOPENIA [None]
